FAERS Safety Report 17673127 (Version 3)
Quarter: 2020Q3

REPORT INFORMATION
  Report Type: Report from Study
  Country: AU (occurrence: AU)
  Receive Date: 20200415
  Receipt Date: 20200828
  Transmission Date: 20201102
  Serious: Yes (Hospitalization, Other)
  Sender: FDA-Public Use
  Company Number: AU-PFIZER INC-2020148743

PATIENT
  Age: 11 Year
  Sex: Male
  Weight: 30.9 kg

DRUGS (5)
  1. VINCRISTINE SULFATE. [Suspect]
     Active Substance: VINCRISTINE SULFATE
     Indication: EMBRYONAL RHABDOMYOSARCOMA
     Dosage: 1.5 MG/M2, (MAX DOSE 2MG) OVER 1 MINUTE OR INFUSION VIA MINIBAG ON DAYS 1, 8, AND 15
     Route: 042
     Dates: start: 20200110
  2. CAMPTOSAR [Suspect]
     Active Substance: IRINOTECAN HYDROCHLORIDE
     Indication: EMBRYONAL RHABDOMYOSARCOMA
     Dosage: 50 MG/M2 (MAX DOSE 100 MG) IV OVER 90 MINUTES ON DAYS 1?5 OF CYCLES 2 AND 4
     Route: 042
     Dates: end: 20200320
  3. TEMSIROLIMUS. [Suspect]
     Active Substance: TEMSIROLIMUS
     Indication: EMBRYONAL RHABDOMYOSARCOMA
     Dosage: 15 MG/M2, IV OVER 30?60 MINUTES ON DAYS 1, 8, AND 15
     Route: 042
     Dates: start: 20200110
  4. CYCLOPHOSPHAMIDE. [Suspect]
     Active Substance: CYCLOPHOSPHAMIDE
     Indication: EMBRYONAL RHABDOMYOSARCOMA
     Dosage: 1200 MG/M2, IV OVER 60 MINUTES ON DAY 1 OF CYCLES 1 AND 3
     Route: 042
     Dates: start: 20200110
  5. DACTINOMYCIN [Suspect]
     Active Substance: DACTINOMYCIN
     Indication: EMBRYONAL RHABDOMYOSARCOMA
     Dosage: 0.05MG/KG (MAX DOSE 2.5MG) IV OVER 1?5 MINUTES ON DAY 1 OF CYCLES 1 AND 3
     Route: 042
     Dates: start: 20200110

REACTIONS (2)
  - White blood cell count decreased [Recovered/Resolved]
  - Febrile neutropenia [Recovered/Resolved]

NARRATIVE: CASE EVENT DATE: 20200320
